FAERS Safety Report 25452935 (Version 4)
Quarter: 2025Q4

REPORT INFORMATION
  Report Type: Report from Study
  Country: EU (occurrence: EU)
  Receive Date: 20250618
  Receipt Date: 20251223
  Transmission Date: 20260117
  Serious: Yes (Hospitalization)
  Sender: PFIZER
  Company Number: EU-PFM-2025-02872

PATIENT
  Age: 78 Year
  Sex: Female
  Weight: 42 kg

DRUGS (19)
  1. ENCORAFENIB [Suspect]
     Active Substance: ENCORAFENIB
     Indication: Metastatic malignant melanoma
     Dosage: 450 MG DAILY
     Route: 065
     Dates: start: 20240603, end: 20250520
  2. ENCORAFENIB [Suspect]
     Active Substance: ENCORAFENIB
     Indication: BRAF V600E mutation positive
     Dosage: 300 MG DAILY
     Route: 065
     Dates: start: 20250604, end: 20250710
  3. ENCORAFENIB [Suspect]
     Active Substance: ENCORAFENIB
     Dosage: 450 MG DAILY
     Route: 065
     Dates: start: 20250711
  4. BINIMETINIB [Suspect]
     Active Substance: BINIMETINIB
     Indication: Metastatic malignant melanoma
     Dosage: 90 MG DAILY
     Route: 065
     Dates: start: 20240603, end: 20250520
  5. BINIMETINIB [Suspect]
     Active Substance: BINIMETINIB
     Indication: BRAF V600E mutation positive
     Dosage: 60 MG DAILY
     Route: 065
     Dates: start: 20250604, end: 20250710
  6. BINIMETINIB [Suspect]
     Active Substance: BINIMETINIB
     Dosage: 90 MG DAILY
     Route: 065
     Dates: start: 20250711
  7. ACTONEL [Concomitant]
     Active Substance: RISEDRONATE SODIUM
     Indication: Osteoporosis
     Dosage: 35 MG, WEEKLY
     Route: 065
     Dates: start: 1994
  8. HYALURONATE SODIUM\TREHALOSE [Concomitant]
     Active Substance: HYALURONATE SODIUM\TREHALOSE
     Indication: Glaucoma
     Dosage: 15 ML, 2X/DAY
     Route: 065
     Dates: start: 2014
  9. TIMOLOL MALEATE [Concomitant]
     Active Substance: TIMOLOL MALEATE
     Indication: Glaucoma
     Dosage: 0.10 %, DAILY
     Route: 065
     Dates: start: 2014
  10. LEVOTHYROXINE [Concomitant]
     Active Substance: LEVOTHYROXINE
     Indication: Hypothyroidism
     Dosage: 50 UG, DAILY
     Route: 065
     Dates: start: 2019, end: 20250325
  11. LEVOTHYROXINE [Concomitant]
     Active Substance: LEVOTHYROXINE
     Dosage: 75 UG, DAILY
     Route: 065
     Dates: start: 20250326, end: 20250518
  12. LEVOTHYROXINE [Concomitant]
     Active Substance: LEVOTHYROXINE
     Dosage: 100 UG, DAILY
     Route: 065
     Dates: start: 20250519
  13. TAHOR [Concomitant]
     Active Substance: ATORVASTATIN CALCIUM
     Indication: Hypercholesterolaemia
     Dosage: 10 MG, DAILY
     Route: 065
     Dates: start: 2022
  14. BROMAZEPAM [Concomitant]
     Active Substance: BROMAZEPAM
     Indication: Anxiety
     Dosage: 1.5 MG, DAILY
     Route: 065
     Dates: start: 20240430
  15. GYDRELLE [Concomitant]
     Indication: Vulvovaginal dryness
     Dosage: 0.1 %, THREE TIMES PER WEEK
     Route: 065
     Dates: start: 20240703
  16. AMOXICILLIN [Concomitant]
     Active Substance: AMOXICILLIN
     Indication: Pyelonephritis
     Dosage: 500 MG, TID (3/DAY)
     Route: 065
     Dates: start: 20240703, end: 20240712
  17. METHOTREXATE [Concomitant]
     Active Substance: METHOTREXATE
     Indication: Rheumatoid arthritis
     Dosage: 10 MG, WEEKLY
     Route: 065
     Dates: start: 20241008, end: 20250520
  18. PREDNISONE [Concomitant]
     Active Substance: PREDNISONE
     Indication: Rheumatoid arthritis
     Dosage: 10 MG, DAILY
     Route: 065
     Dates: start: 20241008, end: 20241011
  19. PREDNISONE [Concomitant]
     Active Substance: PREDNISONE
     Dosage: 5 MG, DAILY
     Route: 065
     Dates: start: 20241012, end: 20241017

REACTIONS (8)
  - Sepsis [Recovered/Resolved]
  - Diarrhoea [Not Recovered/Not Resolved]
  - Nausea [Recovered/Resolved]
  - General physical health deterioration [Not Recovered/Not Resolved]
  - Decreased appetite [Not Recovered/Not Resolved]
  - Anaemia [Not Recovered/Not Resolved]
  - Diarrhoea [Recovered/Resolved]
  - Hyponatraemia [Recovered/Resolved]

NARRATIVE: CASE EVENT DATE: 20250226
